FAERS Safety Report 15946763 (Version 1)
Quarter: 2019Q1

REPORT INFORMATION
  Report Type: Spontaneous
  Country: JP (occurrence: JP)
  Receive Date: 20190212
  Receipt Date: 20190212
  Transmission Date: 20190417
  Serious: Yes (Hospitalization)
  Sender: FDA-Public Use
  Company Number: JP-009507513-1710JPN001608J

PATIENT
  Sex: Female

DRUGS (5)
  1. LIPOVAS TABLETS 5 [Suspect]
     Active Substance: PRAVASTATIN SODIUM
     Dosage: 2.5 MILLIGRAM, QOD
     Route: 048
     Dates: start: 2010, end: 201711
  2. LIPOVAS TABLETS 5 [Suspect]
     Active Substance: PRAVASTATIN SODIUM
     Dosage: 2.5 MILLIGRAM, QD
     Route: 048
     Dates: start: 201712
  3. LIPOVAS TABLETS 5 [Suspect]
     Active Substance: PRAVASTATIN SODIUM
     Dosage: 2.5 MILLIGRAM, QOD
     Route: 048
     Dates: start: 201801
  4. LIPOVAS TABLETS 5 [Suspect]
     Active Substance: PRAVASTATIN SODIUM
     Indication: HYPERLIPIDAEMIA
     Dosage: 5 MILLIGRAM, QD
     Route: 048
     Dates: start: 2002
  5. LIPOVAS TABLETS 5 [Suspect]
     Active Substance: PRAVASTATIN SODIUM
     Dosage: 5 MILLIGRAM, QOD
     Route: 048

REACTIONS (15)
  - Asthma [Unknown]
  - Herpes virus infection [Unknown]
  - Urticaria [Unknown]
  - Low density lipoprotein increased [Unknown]
  - High density lipoprotein increased [Unknown]
  - Back pain [Unknown]
  - Muscular weakness [Unknown]
  - Myalgia [Unknown]
  - Musculoskeletal stiffness [Unknown]
  - Product use issue [Unknown]
  - Eczema [Unknown]
  - Muscular weakness [Unknown]
  - Tenosynovitis [Unknown]
  - Arthralgia [Unknown]
  - Pain in extremity [Unknown]

NARRATIVE: CASE EVENT DATE: 2016
